FAERS Safety Report 8439559-6 (Version None)
Quarter: 2012Q2

REPORT INFORMATION
  Report Type: 
  Country: None (occurrence: None)
  Receive Date: 20120615
  Receipt Date: 20120608
  Transmission Date: 20120825
  Serious: Yes (Hospitalization)
  Sender: FDA-Public Use
  Company Number: BE-JNJFOC-20120605338

PATIENT
  Age: 38 Year
  Sex: Female
  Weight: 45 kg

DRUGS (7)
  1. REMICADE [Suspect]
     Route: 042
     Dates: start: 20110919
  2. IMURAN [Concomitant]
     Indication: CROHN'S DISEASE
     Dates: start: 20100501
  3. METFORMIN HCL [Concomitant]
     Indication: TYPE 2 DIABETES MELLITUS
     Dates: start: 20110323
  4. LEVOTHYROXINE SODIUM [Concomitant]
     Indication: HYPOTHYROIDISM
     Dates: start: 20111004
  5. REMICADE [Suspect]
     Route: 042
     Dates: start: 20110711
  6. INDERAL [Concomitant]
     Indication: TACHYCARDIA
     Dates: start: 20080822
  7. REMICADE [Suspect]
     Indication: CROHN'S DISEASE
     Route: 042
     Dates: start: 20110822

REACTIONS (1)
  - RESECTION OF RECTUM [None]
